FAERS Safety Report 4964503-3 (Version None)
Quarter: 2006Q1

REPORT INFORMATION
  Report Type: 
  Country: None (occurrence: None)
  Receive Date: 20060331
  Receipt Date: 20060324
  Transmission Date: 20060701
  Serious: Yes (Hospitalization)
  Sender: FDA-Public Use
  Company Number: 200610276BYL

PATIENT
  Age: 83 Year
  Sex: Female
  Weight: 55 kg

DRUGS (12)
  1. GLUCOBAY [Suspect]
     Indication: DIABETES MELLITUS
     Dosage: 100 MG, TID, ORAL
     Route: 048
     Dates: end: 20060206
  2. RYTHMODAN R [Concomitant]
  3. NITOROL [Concomitant]
  4. MEVALOTIN [Concomitant]
  5. MAGNESIUM OXIDE [Concomitant]
  6. KM POWDER [Concomitant]
  7. AMLODIN [Concomitant]
  8. ASPIRIN [Concomitant]
  9. PANALDINE [Concomitant]
  10. AMARYL [Concomitant]
  11. DIOVAN [Concomitant]
  12. MELBIN [Concomitant]

REACTIONS (1)
  - PNEUMATOSIS INTESTINALIS [None]
